FAERS Safety Report 9938702 (Version 1)
Quarter: 2014Q1

REPORT INFORMATION
  Report Type: Spontaneous
  Country: US (occurrence: US)
  Receive Date: 20140303
  Receipt Date: 20140303
  Transmission Date: 20141002
  Serious: No
  Sender: FDA-Public Use
  Company Number: US-009507513-1403USA000231

PATIENT
  Sex: Female

DRUGS (2)
  1. NASONEX [Suspect]
     Indication: SEASONAL ALLERGY
     Dosage: 50 MICROGRAM, PRN
     Route: 045
  2. NASONEX [Suspect]
     Indication: HEADACHE

REACTIONS (2)
  - Expired drug administered [Unknown]
  - Inappropriate schedule of drug administration [Unknown]
